FAERS Safety Report 6509332-4 (Version None)
Quarter: 2009Q4

REPORT INFORMATION
  Report Type: 
  Country: None (occurrence: None)
  Receive Date: 20091222
  Receipt Date: 20091215
  Transmission Date: 20100525
  Serious: Yes (Hospitalization, Other)
  Sender: FDA-Public Use
  Company Number: US-RANBAXY-2009US-29804

PATIENT

DRUGS (1)
  1. LAC-HYDRIN TOPICAL LOTION [Suspect]
     Indication: DRUG USE FOR UNKNOWN INDICATION
     Dosage: UNK, UNK
     Route: 061
     Dates: end: 20091118

REACTIONS (2)
  - BLOOD LACTIC ACID INCREASED [None]
  - CHOLELITHIASIS [None]
